FAERS Safety Report 13697022 (Version 1)
Quarter: 2017Q2

REPORT INFORMATION
  Report Type: Spontaneous
  Country: NL (occurrence: NL)
  Receive Date: 20170628
  Receipt Date: 20170628
  Transmission Date: 20170830
  Serious: Yes (Death, Hospitalization, Other)
  Sender: FDA-Public Use
  Company Number: NL-APOPHARMA USA, INC.-2017AP013247

PATIENT
  Age: 62 Year
  Sex: Female

DRUGS (5)
  1. PROTAMINE SULPHATE [Concomitant]
     Active Substance: PROTAMINE SULFATE
     Indication: HEPARIN NEUTRALISATION THERAPY
     Dosage: UNK, UNKNOWN
     Route: 065
  2. ALKERAN [Suspect]
     Active Substance: MELPHALAN
     Indication: INTRAOCULAR MELANOMA
     Dosage: 3 MG/KG, SINGLE
     Route: 013
  3. PHENYLEPHRINE [Concomitant]
     Active Substance: PHENYLEPHRINE\PHENYLEPHRINE HYDROCHLORIDE
     Indication: BLOOD PRESSURE MANAGEMENT
     Dosage: UNK, UNKNOWN
     Route: 042
  4. HEPARIN [Concomitant]
     Active Substance: HEPARIN SODIUM
     Indication: ANTICOAGULANT THERAPY
     Dosage: UNK, UNKNOWN
     Route: 065
  5. NOREPINEPHRINE. [Concomitant]
     Active Substance: NOREPINEPHRINE
     Indication: BLOOD PRESSURE MANAGEMENT
     Dosage: UNK, UNKNOWN
     Route: 042

REACTIONS (7)
  - Pharyngeal abscess [Unknown]
  - Procedural hypotension [Recovered/Resolved]
  - Pyrexia [Unknown]
  - Pharyngitis bacterial [Unknown]
  - Pancytopenia [Recovered/Resolved]
  - Thrombocytopenia [Recovered/Resolved]
  - Sepsis [Unknown]
